FAERS Safety Report 8386287 (Version 23)
Quarter: 2014Q4

REPORT INFORMATION
  Report Type: Spontaneous
  Country: US (occurrence: US)
  Receive Date: 20120202
  Receipt Date: 20141223
  Transmission Date: 20150529
  Serious: Yes (Hospitalization, Other)
  Sender: FDA-Public Use
  Company Number: US-GLAXOSMITHKLINE-A0964102A

PATIENT
  Age: 38 Year
  Sex: Female

DRUGS (22)
  1. FLOLAN [Suspect]
     Active Substance: EPOPROSTENOL SODIUM
     Dosage: UNK
  2. TRACLEER [Concomitant]
     Active Substance: BOSENTAN\BOSENTAN MONOHYDRATE
  3. METOPROLOL [Concomitant]
     Active Substance: METOPROLOL
  4. FLOLAN [Suspect]
     Active Substance: EPOPROSTENOL SODIUM
     Dosage: UNK
     Dates: start: 20061027
  5. FLOLAN [Suspect]
     Active Substance: EPOPROSTENOL SODIUM
     Indication: COR PULMONALE CHRONIC
     Dosage: 53NG/KG/MIN CONTINUOUS, CONCENTRATION OF 75,000NG/ML, VIAL STRENGTH OF 1.5 MG, PUMP RATE NOT RE[...]
     Route: 042
     Dates: start: 20061027
  6. FLOLAN [Suspect]
     Active Substance: EPOPROSTENOL SODIUM
     Dosage: UNK
     Dates: start: 20061027
  7. FLOLAN [Suspect]
     Active Substance: EPOPROSTENOL SODIUM
     Dosage: UNK
     Dates: start: 20061027
  8. VELETRI [Suspect]
     Active Substance: EPOPROSTENOL
  9. FLOLAN [Suspect]
     Active Substance: EPOPROSTENOL SODIUM
     Dosage: UNK
     Dates: start: 20061027
  10. FLOLAN [Suspect]
     Active Substance: EPOPROSTENOL SODIUM
     Dosage: UNK
     Dates: start: 20061027
  11. FLOLAN [Suspect]
     Active Substance: EPOPROSTENOL SODIUM
     Dosage: UNK
     Dates: start: 20061027
  12. FLOLAN [Suspect]
     Active Substance: EPOPROSTENOL SODIUM
     Dosage: UNK
  13. REGLAN [Concomitant]
     Active Substance: METOCLOPRAMIDE HYDROCHLORIDE
  14. FLOLAN [Suspect]
     Active Substance: EPOPROSTENOL SODIUM
     Dosage: UNK
     Dates: start: 20061027
  15. FLOLAN [Suspect]
     Active Substance: EPOPROSTENOL SODIUM
     Dosage: UNK
     Dates: start: 20061027
  16. FLOLAN [Suspect]
     Active Substance: EPOPROSTENOL SODIUM
     Dosage: UNK
     Dates: start: 20061027
  17. FLOLAN [Suspect]
     Active Substance: EPOPROSTENOL SODIUM
     Dosage: 62.7 NG/KG/MIN CONTINUOUS
     Dates: start: 20061030
  18. MORPHINE [Concomitant]
     Active Substance: MORPHINE
  19. FLOLAN [Suspect]
     Active Substance: EPOPROSTENOL SODIUM
     Dosage: UNK
     Dates: start: 20061027
  20. COUMADIN [Concomitant]
     Active Substance: WARFARIN SODIUM
  21. DIGOXIN. [Concomitant]
     Active Substance: DIGOXIN
  22. COLACE [Concomitant]
     Active Substance: DOCUSATE SODIUM

REACTIONS (19)
  - Malaise [Unknown]
  - Intestinal obstruction [Unknown]
  - Pulmonary hypertension [Unknown]
  - Asthenia [Not Recovered/Not Resolved]
  - Productive cough [Not Recovered/Not Resolved]
  - Hospitalisation [Not Recovered/Not Resolved]
  - Headache [Unknown]
  - Adverse event [Unknown]
  - Abdominal pain [Not Recovered/Not Resolved]
  - Catheter site erythema [Unknown]
  - Urinary tract infection [Recovering/Resolving]
  - Nephrolithiasis [Unknown]
  - Chest pain [Not Recovered/Not Resolved]
  - Flushing [Unknown]
  - Bronchitis [Recovering/Resolving]
  - Dyspnoea [Unknown]
  - Abdominal pain upper [Unknown]
  - Catheter site pruritus [Unknown]
  - Pain [Unknown]

NARRATIVE: CASE EVENT DATE: 20120813
